FAERS Safety Report 11739589 (Version 2)
Quarter: 2015Q4

REPORT INFORMATION
  Report Type: Spontaneous
  Country: US (occurrence: US)
  Receive Date: 20151110
  Receipt Date: 20151120
  Transmission Date: 20160304
  Serious: No
  Sender: FDA-Public Use
  Company Number: US-ELI_LILLY_AND_COMPANY-US201207004208

PATIENT
  Age: 58 Year
  Sex: Female

DRUGS (3)
  1. FORTEO [Suspect]
     Active Substance: TERIPARATIDE
     Dosage: 20 UG, QD
  2. FORTEO [Suspect]
     Active Substance: TERIPARATIDE
     Indication: OSTEOPOROSIS
     Dosage: 20 UG, QD
     Dates: start: 201112
  3. FORTEO [Suspect]
     Active Substance: TERIPARATIDE
     Dosage: 20 UG, QD

REACTIONS (11)
  - Surgery [Unknown]
  - Balance disorder [Not Recovered/Not Resolved]
  - Bone lesion [Unknown]
  - High frequency ablation [Unknown]
  - Bone disorder [Unknown]
  - Fall [Unknown]
  - Osteoma cutis [Not Recovered/Not Resolved]
  - Back disorder [Not Recovered/Not Resolved]
  - Epidural injection [Unknown]
  - Back pain [Unknown]
  - Blood calcium abnormal [Recovering/Resolving]

NARRATIVE: CASE EVENT DATE: 201209
